FAERS Safety Report 12769581 (Version 1)
Quarter: 2016Q3

REPORT INFORMATION
  Report Type: Spontaneous
  Country: US (occurrence: US)
  Receive Date: 20160922
  Receipt Date: 20160922
  Transmission Date: 20161109
  Serious: Yes (Hospitalization, Other)
  Sender: FDA-Public Use
  Company Number: US-BAXTER-2016BAX048053

PATIENT
  Sex: Male

DRUGS (12)
  1. ADRIAMYCIN [Suspect]
     Active Substance: DOXORUBICIN HYDROCHLORIDE
     Indication: METASTASES TO CENTRAL NERVOUS SYSTEM
  2. VINCRISTINE [Suspect]
     Active Substance: VINCRISTINE
     Indication: B-CELL TYPE ACUTE LEUKAEMIA
     Dosage: 2 CYCLES, HYPERCVAD WITH MTX
     Route: 065
  3. DEXAMETHASONE. [Suspect]
     Active Substance: DEXAMETHASONE
     Indication: B-CELL TYPE ACUTE LEUKAEMIA
     Dosage: 2 CYCLES, HYPERCVAD WITH MTX
     Route: 065
  4. METHOTREXATE. [Suspect]
     Active Substance: METHOTREXATE
     Indication: B-CELL TYPE ACUTE LEUKAEMIA
     Dosage: 2 CYCLES, HYPERCVAD WITH MTX
     Route: 065
  5. METHOTREXATE. [Suspect]
     Active Substance: METHOTREXATE
     Indication: METASTASES TO CENTRAL NERVOUS SYSTEM
  6. CYCLOPHOSPHAMIDE FOR INJECTION, USP [Suspect]
     Active Substance: CYCLOPHOSPHAMIDE
     Indication: B-CELL TYPE ACUTE LEUKAEMIA
     Dosage: 2 CYCLES, HYPERCVAD WITH MTX
     Route: 065
  7. VINCRISTINE [Suspect]
     Active Substance: VINCRISTINE
     Indication: METASTASES TO CENTRAL NERVOUS SYSTEM
  8. DEXAMETHASONE. [Suspect]
     Active Substance: DEXAMETHASONE
     Indication: METASTASES TO CENTRAL NERVOUS SYSTEM
  9. ADRIAMYCIN [Suspect]
     Active Substance: DOXORUBICIN HYDROCHLORIDE
     Indication: B-CELL TYPE ACUTE LEUKAEMIA
     Dosage: 2 CYCLES, HYPERCVAD WITH MTX
     Route: 065
  10. BLINATUMOMAB [Suspect]
     Active Substance: BLINATUMOMAB
     Indication: B-CELL TYPE ACUTE LEUKAEMIA
     Dosage: CYCLE 1
     Route: 065
  11. CYCLOPHOSPHAMIDE FOR INJECTION, USP [Suspect]
     Active Substance: CYCLOPHOSPHAMIDE
     Indication: METASTASES TO CENTRAL NERVOUS SYSTEM
  12. BLINATUMOMAB [Suspect]
     Active Substance: BLINATUMOMAB
     Indication: METASTASES TO CENTRAL NERVOUS SYSTEM
     Dosage: CYCLE 2, WAS CURRENTLY ON THE CYCLE 2 DAY 37
     Route: 065

REACTIONS (5)
  - Acute lymphocytic leukaemia refractory [Unknown]
  - Post procedural complication [Unknown]
  - Subdural hygroma [Unknown]
  - Subdural haematoma [Unknown]
  - Bone marrow failure [Unknown]
